FAERS Safety Report 6109535-7 (Version None)
Quarter: 2009Q1

REPORT INFORMATION
  Report Type: 
  Country: None (occurrence: None)
  Receive Date: 20090306
  Receipt Date: 20090303
  Transmission Date: 20090719
  Serious: Yes (Death)
  Sender: FDA-Public Use
  Company Number: 2009SP004724

PATIENT
  Age: 55 Year
  Sex: Male
  Weight: 95 kg

DRUGS (6)
  1. TEMOZOLOMIDE [Suspect]
     Indication: GLIOBLASTOMA MULTIFORME
     Dosage: 200 MG/M2
     Dates: start: 20080820, end: 20080824
  2. BEVACIZUMAB [Suspect]
     Indication: GLIOBLASTOMA MULTIFORME
     Dosage: 100 MG/KG; QOW
     Dates: start: 20080820
  3. BEVACIZUMAB [Suspect]
     Indication: GLIOBLASTOMA MULTIFORME
     Dosage: 100 MG/KG; QOW
     Dates: start: 20080903
  4. KEPPRA [Concomitant]
  5. DECADRON [Concomitant]
  6. ZANTAC [Concomitant]

REACTIONS (2)
  - CARDIAC ARREST [None]
  - SUDDEN DEATH [None]
